FAERS Safety Report 8420289-1 (Version None)
Quarter: 2012Q2

REPORT INFORMATION
  Report Type: 
  Country: None (occurrence: None)
  Receive Date: 20120607
  Receipt Date: 20120523
  Transmission Date: 20120825
  Serious: Yes (Other)
  Sender: FDA-Public Use
  Company Number: CHPA2012US011664

PATIENT
  Age: 54 Year
  Sex: Female

DRUGS (3)
  1. BENEFIBER [Concomitant]
     Dosage: UNK
     Dates: start: 20110101, end: 20120301
  2. VOLTAREN [Suspect]
     Indication: NECK PAIN
     Dosage: UNK, QID PRN
     Route: 061
  3. LISINOPRIL [Suspect]
     Indication: HYPERTENSION
     Dosage: UNK, UNK
     Route: 048
     Dates: start: 20111001, end: 20111001

REACTIONS (4)
  - HYPERTENSION [None]
  - RENAL FAILURE [None]
  - DRUG ADMINISTERED AT INAPPROPRIATE SITE [None]
  - OFF LABEL USE [None]
